FAERS Safety Report 16454595 (Version 2)
Quarter: 2020Q2

REPORT INFORMATION
  Report Type: Spontaneous
  Country: US (occurrence: US)
  Receive Date: 20190619
  Receipt Date: 20200616
  Transmission Date: 20200713
  Serious: No
  Sender: FDA-Public Use
  Company Number: US-ROCHE-2291878

PATIENT
  Sex: Male
  Weight: 124.85 kg

DRUGS (1)
  1. ACTEMRA [Suspect]
     Active Substance: TOCILIZUMAB
     Indication: RHEUMATOID ARTHRITIS
     Dosage: ONGOING: YES?STRENGTH: 162MG/0.9ML
     Route: 058

REACTIONS (4)
  - No adverse event [Unknown]
  - Syringe issue [Unknown]
  - Underdose [Unknown]
  - Treatment noncompliance [Unknown]
